FAERS Safety Report 7608350-2 (Version None)
Quarter: 2011Q3

REPORT INFORMATION
  Report Type: 
  Country: None (occurrence: None)
  Receive Date: 20110714
  Receipt Date: 20110707
  Transmission Date: 20111222
  Serious: Yes (Hospitalization)
  Sender: FDA-Public Use
  Company Number: FR-TEVA-289711ISR

PATIENT
  Sex: Male
  Weight: 85 kg

DRUGS (5)
  1. PIRIBEDIL [Concomitant]
     Indication: PARKINSON'S DISEASE
     Dosage: 3 DOSAGE FORMS;
     Route: 048
     Dates: start: 20070101
  2. FLAVONOIDS [Suspect]
     Indication: PERIPHERAL VASCULAR DISORDER
     Dosage: 1000 MILLIGRAM;
     Route: 048
     Dates: start: 20110315, end: 20110608
  3. CLOXACILLIN SODIUM [Suspect]
     Indication: ERYSIPELAS
     Dosage: 2 GRAM;
     Route: 048
     Dates: start: 20110602, end: 20110607
  4. AZILECT [Suspect]
     Indication: PARKINSON'S DISEASE
     Dosage: 1 MILLIGRAM;
     Route: 048
     Dates: start: 20110101
  5. LOSARTAN POTASSIUM AND HYDROCHLOROTHIAZIDE [Concomitant]
     Indication: HYPERTENSION
     Route: 048

REACTIONS (6)
  - DERMATITIS BULLOUS [None]
  - TOXIC SKIN ERUPTION [None]
  - RASH [None]
  - WEIGHT INCREASED [None]
  - OEDEMA PERIPHERAL [None]
  - ERYTHEMA [None]
